FAERS Safety Report 5337958-2 (Version None)
Quarter: 2007Q2

REPORT INFORMATION
  Report Type: 
  Country: None (occurrence: None)
  Receive Date: 20070530
  Receipt Date: 20070523
  Transmission Date: 20071010
  Serious: Yes (Death)
  Sender: FDA-Public Use
  Company Number: PHBS2007JP08576

PATIENT
  Age: 61 Year
  Sex: Female

DRUGS (2)
  1. CYTARABINE [Concomitant]
     Dosage: LOW DOSE
  2. IMATINIB MESYLATE [Suspect]
     Indication: ACUTE MYELOID LEUKAEMIA
     Dosage: 400 MG/DAY
     Route: 065

REACTIONS (2)
  - BLAST CELL COUNT INCREASED [None]
  - CEREBRAL HAEMORRHAGE [None]
